FAERS Safety Report 4293278-9 (Version None)
Quarter: 2004Q1

REPORT INFORMATION
  Report Type: 
  Country: None (occurrence: None)
  Receive Date: 20040126
  Receipt Date: 20031113
  Transmission Date: 20041129
  Serious: No
  Sender: FDA-Public Use
  Company Number: USA031050696

PATIENT
  Age: 72 Year
  Sex: Female
  Weight: 49 kg

DRUGS (1)
  1. FORTEO [Suspect]
     Dosage: 20 UG/DAY
     Dates: start: 20031016

REACTIONS (4)
  - DIZZINESS [None]
  - HEADACHE [None]
  - INJECTION SITE HAEMORRHAGE [None]
  - VERTIGO [None]
